FAERS Safety Report 23228994 (Version 1)
Quarter: 2023Q4

REPORT INFORMATION
  Report Type: Other
  Country: RU (occurrence: None)
  Receive Date: 20231126
  Receipt Date: 20231126
  Transmission Date: 20240110
  Serious: Yes (Other)
  Sender: FDA-Public Use
  Company Number: RU-ROCHE-3460001

PATIENT
  Age: 30 Year
  Sex: Male

DRUGS (4)
  1. BEVACIZUMAB [Suspect]
     Active Substance: BEVACIZUMAB
     Indication: Colorectal cancer stage IV
     Route: 065
     Dates: start: 202204, end: 202205
  2. AFATINIB [Suspect]
     Active Substance: AFATINIB
     Indication: Colorectal cancer stage IV
     Route: 065
     Dates: start: 202204, end: 202205
  3. FLUOROURACIL [Concomitant]
     Active Substance: FLUOROURACIL
     Indication: Colorectal cancer stage IV
     Dates: start: 202206
  4. NIVOLUMAB [Concomitant]
     Active Substance: NIVOLUMAB
     Indication: Colorectal cancer stage IV
     Dates: start: 202206

REACTIONS (3)
  - Disease progression [Unknown]
  - Intestinal obstruction [Unknown]
  - Metastases to peritoneum [Unknown]
